FAERS Safety Report 8455198-5 (Version None)
Quarter: 2012Q2

REPORT INFORMATION
  Report Type: 
  Country: None (occurrence: None)
  Receive Date: 20120614
  Receipt Date: 20120531
  Transmission Date: 20120825
  Serious: Yes (Other)
  Sender: FDA-Public Use
  Company Number: JPI-P-021413

PATIENT
  Age: 42 Year
  Sex: Male
  Weight: 81.6475 kg

DRUGS (6)
  1. XYREM [Suspect]
     Indication: CATAPLEXY
     Dosage: SEE IMAGE
     Route: 048
     Dates: start: 20120509, end: 20120501
  2. XYREM [Suspect]
     Indication: CATAPLEXY
     Dosage: SEE IMAGE
     Route: 048
     Dates: start: 20120501, end: 20120529
  3. XYREM [Suspect]
     Indication: CATAPLEXY
     Dosage: SEE IMAGE
     Route: 048
     Dates: start: 20120601
  4. XYREM [Suspect]
     Indication: CATAPLEXY
     Dosage: SEE IMAGE
     Route: 048
     Dates: start: 20120530, end: 20120531
  5. NUVIGIL [Concomitant]
  6. VIAGRA [Concomitant]

REACTIONS (9)
  - SNORING [None]
  - BACK PAIN [None]
  - FALL [None]
  - CONVULSION [None]
  - CONDITION AGGRAVATED [None]
  - CATAPLEXY [None]
  - BALANCE DISORDER [None]
  - PARAESTHESIA [None]
  - JOINT INJURY [None]
